FAERS Safety Report 19107501 (Version 1)
Quarter: 2021Q2

REPORT INFORMATION
  Report Type: Spontaneous
  Country: US (occurrence: US)
  Receive Date: 20210408
  Receipt Date: 20210408
  Transmission Date: 20210717
  Serious: No
  Sender: FDA-Public Use
  Company Number: None

PATIENT
  Age: 47 Year
  Sex: Female

DRUGS (1)
  1. RENFLEXIS [Suspect]
     Active Substance: INFLIXIMAB-ABDA
     Dosage: ?          OTHER FREQUENCY:N/A;?
     Route: 041
     Dates: start: 202011, end: 20210408

REACTIONS (1)
  - Treatment failure [None]

NARRATIVE: CASE EVENT DATE: 20210408
